FAERS Safety Report 4859448-3 (Version None)
Quarter: 2005Q4

REPORT INFORMATION
  Report Type: 
  Country: None (occurrence: None)
  Receive Date: 20051219
  Receipt Date: 20050613
  Transmission Date: 20060501
  Serious: No
  Sender: FDA-Public Use
  Company Number: US-GLAXOSMITHKLINE-A0562377A

PATIENT
  Age: 51 Year
  Sex: Female

DRUGS (1)
  1. MEMBERS MARK NTS ORIGINAL, 21MG [Suspect]
     Dates: start: 20050608, end: 20050609

REACTIONS (10)
  - ANXIETY [None]
  - BLEPHAROSPASM [None]
  - BLOOD PRESSURE INCREASED [None]
  - DIZZINESS [None]
  - DRY SKIN [None]
  - ERYTHEMA [None]
  - FLUSHING [None]
  - INSOMNIA [None]
  - SKIN HAEMORRHAGE [None]
  - VISION BLURRED [None]
